FAERS Safety Report 7900742-7 (Version None)
Quarter: 2011Q4

REPORT INFORMATION
  Report Type: 
  Country: None (occurrence: None)
  Receive Date: 20111108
  Receipt Date: 20111027
  Transmission Date: 20120403
  Serious: Yes (Hospitalization)
  Sender: FDA-Public Use
  Company Number: JP-AMGEN-JPNCT2011057457

PATIENT
  Age: 73 Year
  Sex: Female
  Weight: 50 kg

DRUGS (3)
  1. MEVARICH [Concomitant]
     Indication: HYPERLIPIDAEMIA
     Route: 048
  2. CALCIUM CARBONATE [Concomitant]
     Indication: OSTEOPOROSIS
     Route: 048
     Dates: start: 20090501
  3. DENOSUMAB [Suspect]
     Indication: OSTEOPOROSIS
     Dosage: 60 MG, Q6MO
     Route: 058
     Dates: start: 20110603

REACTIONS (1)
  - CEREBRAL HAEMORRHAGE [None]
